FAERS Safety Report 5587257-9 (Version None)
Quarter: 2008Q1

REPORT INFORMATION
  Report Type: 
  Country: None (occurrence: None)
  Receive Date: 20080110
  Receipt Date: 20080103
  Transmission Date: 20080703
  Serious: Yes (Other)
  Sender: FDA-Public Use
  Company Number: US-ELI_LILLY_AND_COMPANY-US200801000688

PATIENT
  Sex: Male

DRUGS (3)
  1. BYETTA [Suspect]
     Dates: end: 20070101
  2. BYETTA [Suspect]
     Dates: start: 20070101
  3. HYDROCHLOROTHIAZIDE [Concomitant]

REACTIONS (4)
  - ABDOMINAL PAIN UPPER [None]
  - NAUSEA [None]
  - PANCREATITIS [None]
  - VOMITING [None]
